FAERS Safety Report 23448733 (Version 4)
Quarter: 2025Q1

REPORT INFORMATION
  Report Type: Other
  Country: US (occurrence: US)
  Receive Date: 20240127
  Receipt Date: 20250325
  Transmission Date: 20250409
  Serious: No
  Sender: TRAVERE THERAPEUTICS
  Company Number: US-TRAVERE-2023TVT00857

PATIENT
  Sex: Male

DRUGS (2)
  1. FILSPARI [Suspect]
     Active Substance: SPARSENTAN
     Indication: IgA nephropathy
     Route: 048
     Dates: start: 20230629
  2. FILSPARI [Suspect]
     Active Substance: SPARSENTAN
     Route: 048

REACTIONS (7)
  - Fatigue [Unknown]
  - Fluid retention [Unknown]
  - Weight increased [Unknown]
  - Hypertension [None]
  - Peripheral swelling [None]
  - Joint swelling [None]
  - Product dose omission issue [Unknown]
